FAERS Safety Report 11193505 (Version 1)
Quarter: 2015Q2

REPORT INFORMATION
  Report Type: Spontaneous
  Country: US (occurrence: US)
  Receive Date: 20150616
  Receipt Date: 20150616
  Transmission Date: 20150821
  Serious: No
  Sender: FDA-Public Use
  Company Number: US-TAKEDA-2014MPI001172

PATIENT
  Sex: Male
  Weight: 68.27 kg

DRUGS (4)
  1. VELCADE [Suspect]
     Active Substance: BORTEZOMIB
     Indication: PLASMA CELL MYELOMA
     Dosage: 2.5 MG, ON DAYS 1,4, 8, AND 11 (EVERY 21 DAYS).
     Route: 058
     Dates: start: 20140218
  2. AREDIA [Concomitant]
     Active Substance: PAMIDRONATE DISODIUM
  3. DECADRON [Concomitant]
     Active Substance: DEXAMETHASONE
  4. ZOFRAN                             /00955301/ [Concomitant]
     Active Substance: ONDANSETRON HYDROCHLORIDE

REACTIONS (1)
  - General physical health deterioration [Unknown]
